FAERS Safety Report 13332243 (Version 1)
Quarter: 2017Q1

REPORT INFORMATION
  Report Type: Spontaneous
  Country: US (occurrence: US)
  Receive Date: 20170314
  Receipt Date: 20170314
  Transmission Date: 20170428
  Serious: No
  Sender: FDA-Public Use
  Company Number: US-JNJFOC-20170227074

PATIENT
  Age: 90 Year
  Sex: Female
  Weight: 58.97 kg

DRUGS (2)
  1. TYLENOL 8 HR ARTHRITIS PAIN [Suspect]
     Active Substance: ACETAMINOPHEN
     Route: 048
  2. TYLENOL 8 HR ARTHRITIS PAIN [Suspect]
     Active Substance: ACETAMINOPHEN
     Indication: PAIN IN EXTREMITY
     Dosage: 3X PER DAY
     Route: 048
     Dates: start: 20170213, end: 201702

REACTIONS (3)
  - Drug prescribing error [Unknown]
  - Drug ineffective [Unknown]
  - Off label use [Unknown]
